FAERS Safety Report 4808797-3 (Version None)
Quarter: 2005Q4

REPORT INFORMATION
  Report Type: 
  Country: None (occurrence: None)
  Receive Date: 20051021
  Receipt Date: 20020606
  Transmission Date: 20060501
  Serious: No
  Sender: FDA-Public Use
  Company Number: AU_020605115

PATIENT
  Sex: Female

DRUGS (3)
  1. ZYPREXA [Suspect]
     Indication: DEPRESSION
     Dosage: 7.5 MG/DAY
     Dates: start: 20020201
  2. NATRILIX (INDAPAMIDE) [Concomitant]
  3. EFFEXOR [Concomitant]

REACTIONS (3)
  - AMENORRHOEA [None]
  - MENSTRUATION IRREGULAR [None]
  - NAUSEA [None]
